FAERS Safety Report 6218548-6 (Version None)
Quarter: 2009Q2

REPORT INFORMATION
  Report Type: 
  Country: None (occurrence: None)
  Receive Date: 20090608
  Receipt Date: 20090527
  Transmission Date: 20091009
  Serious: Yes (Hospitalization)
  Sender: FDA-Public Use
  Company Number: PHHY2009DE20777

PATIENT
  Sex: Female
  Weight: 64.2 kg

DRUGS (6)
  1. MYCOPHENOLIC ACID [Suspect]
     Indication: RENAL TRANSPLANT
     Dosage: 720 MG/DAY
     Route: 048
     Dates: start: 20090108, end: 20090223
  2. MYCOPHENOLIC ACID [Suspect]
     Dosage: 540 MG/DAY
     Route: 048
     Dates: start: 20090224, end: 20090301
  3. MYCOPHENOLIC ACID [Suspect]
     Dosage: 360 MG/DAY
     Route: 048
     Dates: start: 20090305
  4. TACROLIMUS [Concomitant]
     Indication: RENAL TRANSPLANT
     Dosage: 9 MG/DAY
     Route: 048
     Dates: start: 20081106, end: 20090127
  5. TACROLIMUS [Concomitant]
     Dosage: 8.5 MG/DAY
     Route: 048
     Dates: start: 20090128, end: 20090129
  6. TACROLIMUS [Concomitant]
     Dosage: 15 MG/DAY
     Route: 048
     Dates: start: 20090130

REACTIONS (1)
  - ACUTE PRERENAL FAILURE [None]
